FAERS Safety Report 25629831 (Version 3)
Quarter: 2025Q3

REPORT INFORMATION
  Report Type: Spontaneous
  Country: EU (occurrence: EU)
  Receive Date: 20250731
  Receipt Date: 20250822
  Transmission Date: 20251020
  Serious: Yes (Hospitalization)
  Sender: CELLTRION
  Company Number: EU-CELLTRION INC.-2025DE025197

PATIENT

DRUGS (38)
  1. INFLIXIMAB [Suspect]
     Active Substance: INFLIXIMAB
     Indication: Ankylosing spondylitis
     Dosage: 120 MG - EVERY TWO WEEKS
     Route: 058
     Dates: start: 20240507
  2. INFLIXIMAB [Suspect]
     Active Substance: INFLIXIMAB
     Dosage: 120 MG - EVERY TWO WEEKS
     Route: 058
     Dates: start: 20240521
  3. INFLIXIMAB [Suspect]
     Active Substance: INFLIXIMAB
     Dosage: 120 MG - EVERY TWO WEEKS
     Route: 058
     Dates: start: 20240604
  4. INFLIXIMAB [Suspect]
     Active Substance: INFLIXIMAB
     Dosage: 120 MG - EVERY TWO WEEKS
     Route: 058
     Dates: start: 20240618
  5. INFLIXIMAB [Suspect]
     Active Substance: INFLIXIMAB
     Dosage: 120 MG - EVERY TWO WEEKS
     Route: 058
     Dates: start: 20240702
  6. INFLIXIMAB [Suspect]
     Active Substance: INFLIXIMAB
     Dosage: 120 MG - EVERY TWO WEEKS
     Route: 058
     Dates: start: 20240716
  7. INFLIXIMAB [Suspect]
     Active Substance: INFLIXIMAB
     Dosage: 120 MG - EVERY TWO WEEKS
     Route: 058
     Dates: start: 20240730
  8. INFLIXIMAB [Suspect]
     Active Substance: INFLIXIMAB
     Dosage: 120 MG - EVERY TWO WEEKS
     Route: 058
     Dates: start: 20240813
  9. INFLIXIMAB [Suspect]
     Active Substance: INFLIXIMAB
     Dosage: 120 MG - EVERY TWO WEEKS
     Route: 058
     Dates: start: 20240827
  10. INFLIXIMAB [Suspect]
     Active Substance: INFLIXIMAB
     Dosage: 120 MG - EVERY TWO WEEKS
     Route: 058
     Dates: start: 20240910
  11. INFLIXIMAB [Suspect]
     Active Substance: INFLIXIMAB
     Dosage: 120 MG - EVERY TWO WEEKS
     Route: 058
     Dates: start: 20240924
  12. INFLIXIMAB [Suspect]
     Active Substance: INFLIXIMAB
     Dosage: 120 MG - EVERY TWO WEEKS
     Route: 058
     Dates: start: 20241008
  13. INFLIXIMAB [Suspect]
     Active Substance: INFLIXIMAB
     Dosage: 120 MG - EVERY TWO WEEKS
     Route: 058
     Dates: start: 20241105
  14. INFLIXIMAB [Suspect]
     Active Substance: INFLIXIMAB
     Dosage: 120 MG - EVERY TWO WEEKS
     Route: 058
     Dates: start: 20241119
  15. INFLIXIMAB [Suspect]
     Active Substance: INFLIXIMAB
     Dosage: 120 MG - EVERY TWO WEEKS
     Route: 058
     Dates: start: 20241203
  16. INFLIXIMAB [Suspect]
     Active Substance: INFLIXIMAB
     Dosage: 120 MG - EVERY TWO WEEKS
     Route: 058
     Dates: start: 20241217
  17. INFLIXIMAB [Suspect]
     Active Substance: INFLIXIMAB
     Dosage: 120 MG - EVERY TWO WEEKS
     Route: 058
     Dates: start: 20241231
  18. INFLIXIMAB [Suspect]
     Active Substance: INFLIXIMAB
     Dosage: 120 MG - EVERY TWO WEEKS
     Route: 058
     Dates: start: 20250114
  19. INFLIXIMAB [Suspect]
     Active Substance: INFLIXIMAB
     Dosage: 120 MG - EVERY TWO WEEKS
     Route: 058
     Dates: start: 20250128
  20. INFLIXIMAB [Suspect]
     Active Substance: INFLIXIMAB
     Dosage: 120 MG - EVERY TWO WEEKS
     Route: 058
     Dates: start: 20250211
  21. INFLIXIMAB [Suspect]
     Active Substance: INFLIXIMAB
     Dosage: 120 MG - EVERY TWO WEEKS
     Route: 058
     Dates: start: 20250225
  22. INFLIXIMAB [Suspect]
     Active Substance: INFLIXIMAB
     Dosage: 120 MG - EVERY TWO WEEKS
     Route: 058
     Dates: start: 20250311
  23. INFLIXIMAB [Suspect]
     Active Substance: INFLIXIMAB
     Dosage: 120 MG - EVERY TWO WEEKS
     Route: 058
     Dates: start: 20250325
  24. INFLIXIMAB [Suspect]
     Active Substance: INFLIXIMAB
     Dosage: 120 MG - EVERY TWO WEEKS
     Route: 042
     Dates: start: 20250408
  25. INFLIXIMAB [Suspect]
     Active Substance: INFLIXIMAB
     Dosage: 120 MG - EVERY TWO WEEKS
     Route: 058
     Dates: start: 20250422
  26. INFLIXIMAB [Suspect]
     Active Substance: INFLIXIMAB
     Dosage: 120 MG - EVERY TWO WEEKS
     Route: 058
     Dates: start: 20250506
  27. INFLIXIMAB [Suspect]
     Active Substance: INFLIXIMAB
     Dosage: 120 MG- EVERY TWO WEEKS
     Route: 058
     Dates: start: 20250520
  28. INFLIXIMAB [Suspect]
     Active Substance: INFLIXIMAB
     Dosage: 120 MG- EVERY TWO WEEKS
     Route: 058
     Dates: start: 20250603
  29. INFLIXIMAB [Suspect]
     Active Substance: INFLIXIMAB
     Dosage: 120 MG- EVERY TWO WEEKS
     Route: 058
     Dates: start: 20250617
  30. INFLIXIMAB [Suspect]
     Active Substance: INFLIXIMAB
     Dosage: 120 MG- EVERY TWO WEEKS
     Route: 058
     Dates: start: 20250701
  31. INFLIXIMAB [Suspect]
     Active Substance: INFLIXIMAB
     Dosage: 120 MG - EVERY TWO WEEKS
     Route: 058
     Dates: start: 20250715
  32. INFLIXIMAB [Suspect]
     Active Substance: INFLIXIMAB
     Dosage: 120 MG- EVERY TWO WEEKS
     Route: 058
     Dates: start: 20250801
  33. ACEMETACIN [Concomitant]
     Active Substance: ACEMETACIN
     Indication: Ankylosing spondylitis
     Route: 048
     Dates: start: 202402
  34. PANTOPRAZOLE SODIUM [Concomitant]
     Active Substance: PANTOPRAZOLE SODIUM
     Indication: Gastritis prophylaxis
     Route: 048
     Dates: start: 202402
  35. CHOLECALCIFEROL [Concomitant]
     Active Substance: CHOLECALCIFEROL
     Indication: Osteoporosis prophylaxis
     Route: 048
     Dates: start: 202403
  36. AMOXICILLIN [Concomitant]
     Active Substance: AMOXICILLIN
     Indication: Adverse event
     Route: 048
     Dates: start: 20241015, end: 20241025
  37. CETIRIZINE HYDROCHLORIDE [Concomitant]
     Active Substance: CETIRIZINE HYDROCHLORIDE
     Route: 048
     Dates: start: 20250412
  38. ESCITALOPRAM [Concomitant]
     Active Substance: ESCITALOPRAM OXALATE
     Indication: Adverse event
     Route: 048
     Dates: start: 20250721

REACTIONS (1)
  - Back pain [Recovered/Resolved]

NARRATIVE: CASE EVENT DATE: 20250724
